FAERS Safety Report 14763823 (Version 2)
Quarter: 2018Q2

REPORT INFORMATION
  Report Type: Spontaneous
  Country: DE (occurrence: DE)
  Receive Date: 20180416
  Receipt Date: 20180420
  Transmission Date: 20180711
  Serious: Yes (Death, Other)
  Sender: FDA-Public Use
  Company Number: DE-IMPAX LABORATORIES, INC-2018-IPXL-01184

PATIENT
  Age: 58 Year
  Sex: Female

DRUGS (1)
  1. METFORMIN HYDROCHLORIDE ER [Suspect]
     Active Substance: METFORMIN HYDROCHLORIDE
     Indication: DIABETES MELLITUS
     Dosage: 500 MG, DAILY
     Route: 065

REACTIONS (5)
  - Lactic acidosis [Fatal]
  - Cardiogenic shock [Fatal]
  - Renal failure [Unknown]
  - Hepatic failure [Fatal]
  - Aspiration [Fatal]
